FAERS Safety Report 13599113 (Version 1)
Quarter: 2017Q2

REPORT INFORMATION
  Report Type: Spontaneous
  Country: GB (occurrence: GB)
  Receive Date: 20170531
  Receipt Date: 20170531
  Transmission Date: 20170830
  Serious: Yes (Other)
  Sender: FDA-Public Use
  Company Number: GB-SUNOVION-2017SUN002310

PATIENT

DRUGS (5)
  1. LATUDA [Suspect]
     Active Substance: LURASIDONE HYDROCHLORIDE
     Dosage: 74 MG, QD
     Route: 065
     Dates: start: 20170413
  2. OLANZAPINE. [Concomitant]
     Active Substance: OLANZAPINE
     Dosage: FOR A COUPLE OF WEEK DURING THE TITRATION TO LURASIDONE
  3. LATUDA [Suspect]
     Active Substance: LURASIDONE HYDROCHLORIDE
     Indication: PSYCHOTIC DISORDER
     Dosage: 37 MG, QD
     Route: 065
     Dates: start: 20170406, end: 20170413
  4. DIAZEPAM. [Concomitant]
     Active Substance: DIAZEPAM
     Dosage: REGULARLY
  5. LATUDA [Suspect]
     Active Substance: LURASIDONE HYDROCHLORIDE
     Dosage: AS TWO DOSES OF 74MG AND 37MG.
     Route: 065

REACTIONS (2)
  - Hallucination [Recovering/Resolving]
  - Psychotic disorder [Recovering/Resolving]

NARRATIVE: CASE EVENT DATE: 20170413
